FAERS Safety Report 6433145-5 (Version None)
Quarter: 2009Q4

REPORT INFORMATION
  Report Type: 
  Country: None (occurrence: None)
  Receive Date: 20091109
  Receipt Date: 20091026
  Transmission Date: 20100525
  Serious: Yes (Other)
  Sender: FDA-Public Use
  Company Number: PHEH2009US14435

PATIENT
  Sex: Female

DRUGS (7)
  1. ZOMETA [Suspect]
     Dosage: UNK
  2. REVLIMID [Suspect]
     Indication: MULTIPLE MYELOMA
     Dosage: 25 MG, DAILY X 21 DAYS
     Route: 048
     Dates: start: 20090724
  3. DEXAMETHASONE [Concomitant]
  4. PROVENTIL-HFA [Concomitant]
  5. HYDROCHLOROTHIAZIDE [Concomitant]
  6. ASPIRIN [Concomitant]
  7. KLOR-CON [Concomitant]

REACTIONS (6)
  - ANAEMIA [None]
  - DIARRHOEA [None]
  - FATIGUE [None]
  - LOSS OF CONSCIOUSNESS [None]
  - NAUSEA [None]
  - WEIGHT DECREASED [None]
